FAERS Safety Report 5978320-9 (Version None)
Quarter: 2008Q4

REPORT INFORMATION
  Report Type: 
  Country: None (occurrence: None)
  Receive Date: 20081204
  Receipt Date: 20081022
  Transmission Date: 20090506
  Serious: No
  Sender: FDA-Public Use
  Company Number: US-BAYER-200836763NA

PATIENT
  Age: 47 Year
  Sex: Female
  Weight: 67 kg

DRUGS (3)
  1. MIRENA [Suspect]
     Indication: CONTRACEPTION
     Route: 015
     Dates: start: 20030901, end: 20081021
  2. MIRENA [Suspect]
     Dates: start: 20081021, end: 20081021
  3. VITAMIN B [Concomitant]
     Indication: DRUG USE FOR UNKNOWN INDICATION

REACTIONS (2)
  - ABDOMINAL PAIN [None]
  - PROCEDURAL PAIN [None]
